FAERS Safety Report 8200214-9 (Version None)
Quarter: 2012Q1

REPORT INFORMATION
  Report Type: 
  Country: None (occurrence: None)
  Receive Date: 20120306
  Receipt Date: 20120224
  Transmission Date: 20120608
  Serious: Yes (Hospitalization, Other)
  Sender: FDA-Public Use
  Company Number: ABR_00384_2012

PATIENT
  Age: 6 Year
  Sex: Male
  Weight: 24 kg

DRUGS (3)
  1. MIDAZOLAM [Suspect]
     Indication: SEDATION
     Dosage: (0.5 MG/KG] ORAL)
     Route: 048
  2. ERYTHROMYCIN ETHYLSUCCINATE [Suspect]
     Indication: PRODUCT USED FOR UNKNOWN INDICATION
  3. ACETAMINOPHEN [Concomitant]

REACTIONS (2)
  - DRUG INTERACTION [None]
  - SEDATION [None]
